FAERS Safety Report 13501876 (Version 2)
Quarter: 2017Q2

REPORT INFORMATION
  Report Type: Spontaneous
  Country: RU (occurrence: RU)
  Receive Date: 20170502
  Receipt Date: 20170511
  Transmission Date: 20170830
  Serious: Yes (Other)
  Sender: FDA-Public Use
  Company Number: RU-ROCHE-1926117

PATIENT
  Age: 69 Year
  Sex: Female

DRUGS (3)
  1. BEYODYM [Concomitant]
     Indication: HER-2 POSITIVE BREAST CANCER
     Dosage: 5 COURSES
     Route: 042
     Dates: start: 20160929, end: 20170102
  2. DOCETAXEL. [Concomitant]
     Active Substance: DOCETAXEL
     Route: 065
     Dates: start: 20160805, end: 20160909
  3. TRASTUZUMAB [Suspect]
     Active Substance: TRASTUZUMAB
     Indication: HER-2 POSITIVE BREAST CANCER
     Route: 042
     Dates: start: 2017

REACTIONS (2)
  - Cardiotoxicity [Unknown]
  - Off label use [Unknown]
